FAERS Safety Report 9134083 (Version 1)
Quarter: 2013Q1

REPORT INFORMATION
  Report Type: Spontaneous
  Country: US (occurrence: None)
  Receive Date: 20130228
  Receipt Date: 20130228
  Transmission Date: 20140127
  Serious: Yes (Death)
  Sender: FDA-Public Use
  Company Number: None

PATIENT
  Age: 70 Year
  Sex: Male
  Weight: 84 kg

DRUGS (10)
  1. ISOTRETINOIN [Suspect]
     Indication: DEMENTIA ALZHEIMER^S TYPE
     Route: 048
     Dates: start: 20120728, end: 20120906
  2. ARICEPT [Concomitant]
  3. LIPITOR [Concomitant]
  4. UNISOM [Concomitant]
  5. NAMENDA [Concomitant]
  6. VIAGRA [Concomitant]
  7. XANAX [Concomitant]
  8. ZANTAC [Concomitant]
  9. EXCEDRIN PM [Concomitant]
  10. MACULAR PROTECT PLUS VITAMIN [Concomitant]

REACTIONS (2)
  - Glioblastoma [None]
  - Decreased activity [None]
